FAERS Safety Report 6471766-4 (Version None)
Quarter: 2009Q4

REPORT INFORMATION
  Report Type: 
  Country: None (occurrence: None)
  Receive Date: 20091203
  Receipt Date: 20080317
  Transmission Date: 20100525
  Serious: Yes (Other)
  Sender: FDA-Public Use
  Company Number: US-ELI_LILLY_AND_COMPANY-US200803004019

PATIENT
  Sex: Female

DRUGS (9)
  1. BYETTA [Suspect]
     Indication: TYPE 2 DIABETES MELLITUS
     Dosage: 5 UG, 2/D
     Route: 058
     Dates: start: 20060101
  2. BYETTA [Suspect]
     Dosage: 10 UG, 2/D
     Route: 058
     Dates: end: 20071001
  3. METFORMIN HCL [Concomitant]
  4. GLIPIZIDE [Concomitant]
  5. NITROGLYCERIN [Concomitant]
     Indication: CHEST PAIN
  6. NOVOLIN R [Concomitant]
  7. HUMULIN N [Concomitant]
  8. ISOSORBIDE [Concomitant]
  9. VYTORIN [Concomitant]

REACTIONS (4)
  - CHEST PAIN [None]
  - MYOCARDIAL INFARCTION [None]
  - PAIN IN EXTREMITY [None]
  - WEIGHT DECREASED [None]
